FAERS Safety Report 9903601 (Version 5)
Quarter: 2014Q2

REPORT INFORMATION
  Report Type: Report from Study
  Country: DE (occurrence: DE)
  Receive Date: 20140217
  Receipt Date: 20140507
  Transmission Date: 20141212
  Serious: Yes (Other)
  Sender: FDA-Public Use
  Company Number: DE-GILEAD-2014-0094263

PATIENT
  Age: 47 Year
  Sex: Male
  Weight: 70.3 kg

DRUGS (10)
  1. SOFOSBUVIR [Suspect]
     Indication: CHRONIC HEPATITIS C
     Dosage: 400 MG, QD
     Route: 048
     Dates: start: 20130415, end: 20130930
  2. RIBAVIRIN [Suspect]
     Indication: CHRONIC HEPATITIS C
     Dosage: 1000 MG, QD
     Route: 048
     Dates: start: 20130415, end: 20130930
  3. TRUVADA [Concomitant]
     Route: 048
     Dates: start: 20121117
  4. DARUNAVIR [Concomitant]
     Route: 048
     Dates: start: 20121117
  5. RITONAVIR [Concomitant]
     Route: 048
     Dates: start: 20121117
  6. FACTOR VIII [Concomitant]
     Indication: HAEMOPHILIA
     Dosage: UNK
     Route: 042
     Dates: start: 1974, end: 20140128
  7. IBUPROFEN [Concomitant]
     Indication: LOWER LIMB FRACTURE
     Dosage: UNK
     Route: 048
     Dates: start: 20131116
  8. DEKRISTOL [Concomitant]
     Indication: VITAMIN D DEFICIENCY
     Route: 048
     Dates: start: 20120503
  9. VOLTAREN RESINAT [Concomitant]
     Indication: HAEMARTHROSIS
     Route: 048
     Dates: start: 20120208
  10. CLEXANE [Concomitant]
     Dosage: UNK
     Route: 058
     Dates: start: 20131118, end: 20140115

REACTIONS (1)
  - Factor VIII inhibition [Not Recovered/Not Resolved]
